FAERS Safety Report 8789696 (Version 2)
Quarter: 2012Q4

REPORT INFORMATION
  Report Type: Spontaneous
  Country: GB (occurrence: None)
  Receive Date: 20120906
  Receipt Date: 20121022
  Transmission Date: 20130627
  Serious: Yes (Other)
  Sender: FDA-Public Use
  Company Number: ABR_00618_2012

PATIENT
  Sex: Male

DRUGS (8)
  1. GLYCERYL TRINITRATE [Suspect]
     Indication: CARDIC DISORDER
     Dosage: (DF)
     Dates: start: 201206, end: 201207
  2. GLYCERYL TRINITRATE [Suspect]
     Indication: ANGINA PECTORIS
     Dosage: (DF)
     Dates: start: 201206, end: 201207
  3. ASPIRIN [Concomitant]
  4. ATORVASTATIN [Concomitant]
  5. AMLODIPINE [Concomitant]
  6. CLOPIDOGREL [Concomitant]
  7. RAMIPRIL [Concomitant]
  8. SPIRONOLACTONE [Concomitant]

REACTIONS (2)
  - Vision blurred [None]
  - Condition aggravated [None]
